FAERS Safety Report 26106731 (Version 3)
Quarter: 2025Q4

REPORT INFORMATION
  Report Type: Spontaneous
  Country: US (occurrence: US)
  Receive Date: 20251201
  Receipt Date: 20251227
  Transmission Date: 20260118
  Serious: Yes (Hospitalization, Other)
  Sender: ALEMBIC
  Company Number: US-ALEMBIC PHARMACUETICALS LIMITED-2025SCAL001585

PATIENT

DRUGS (4)
  1. FLUOXETINE [Suspect]
     Active Substance: FLUOXETINE HYDROCHLORIDE
     Indication: Schizophrenia
     Dosage: INGESTED 20 FLUOXETINE 20 MG TABLETS
     Route: 065
  2. OLANZAPINE [Suspect]
     Active Substance: OLANZAPINE
     Indication: Schizophrenia
     Dosage: EIGHT OLANZAPINE 15 MG TABLETS
     Route: 065
  3. ACETAMINOPHEN\HYDROCODONE [Suspect]
     Active Substance: ACETAMINOPHEN\HYDROCODONE
     Indication: Schizophrenia
     Dosage: HYDROCODONE 10 MG ACETAMINOPHEN 325 MG TABLETS
     Route: 065
  4. MORPHINE SULFATE [Suspect]
     Active Substance: MORPHINE SULFATE
     Indication: Schizophrenia
     Dosage: EIGHT CONTROLLED-RELEASE MORPHINE SULFATE 30 MG TABLETS
     Route: 065

REACTIONS (10)
  - Hypopnoea [Recovered/Resolved]
  - Bradypnoea [Recovered/Resolved]
  - Depressed level of consciousness [Recovered/Resolved]
  - Respiratory depression [Recovered/Resolved]
  - Carbon dioxide increased [Recovered/Resolved]
  - Electrocardiogram QT prolonged [Unknown]
  - Somnolence [Not Recovered/Not Resolved]
  - Tachycardia [Unknown]
  - Mental status changes [Unknown]
  - Overdose [Unknown]
